FAERS Safety Report 8236003-9 (Version None)
Quarter: 2012Q1

REPORT INFORMATION
  Report Type: 
  Country: None (occurrence: None)
  Receive Date: 20120326
  Receipt Date: 20120315
  Transmission Date: 20120608
  Serious: Yes (Hospitalization, Other)
  Sender: FDA-Public Use
  Company Number: US-ASTRAZENECA-2012SE18140

PATIENT
  Age: 55 Year
  Sex: Female

DRUGS (24)
  1. ZOFRAN ODT [Concomitant]
     Indication: NAUSEA
     Route: 048
  2. PERCOCET [Concomitant]
     Indication: PAIN
     Dosage: 6-325 ONE TAB EVERY 4 HOURS AS NEEDED
     Route: 048
  3. ESTRACE [Concomitant]
     Route: 048
  4. PROPRANOLOL HYDROCHLORIDE [Concomitant]
     Dosage: 20 MG TWO TO THREE TIMES A DAY
     Route: 048
  5. FLEXERIL [Concomitant]
     Indication: MUSCLE SPASMS
     Dosage: 10 MG THREE TIMES A DAY AS NEEDED
     Route: 048
  6. ASPIRIN [Concomitant]
  7. RESTORIL [Concomitant]
     Indication: SLEEP DISORDER
     Route: 048
  8. REQUIP [Concomitant]
     Route: 048
  9. CYMBALTA [Concomitant]
     Route: 048
  10. CYANOCOBALAMIN [Concomitant]
     Dosage: 1000 MCG/ML SOLN 1 ML MONTHLY AS DIRECTED
     Route: 030
  11. AMBIEN [Concomitant]
     Indication: SLEEP DISORDER
     Route: 048
  12. FLAGYL [Concomitant]
     Indication: INFECTION
     Route: 048
  13. GABAPENTIN [Concomitant]
     Indication: NEUROPATHY PERIPHERAL
     Route: 048
  14. ZINC OXIDE [Concomitant]
     Dosage: TWICE A DAY
  15. LORTAB [Concomitant]
     Indication: PAIN
     Dosage: 7.5-500 MG ONE EVERY 4-6 HOURS
     Route: 048
  16. NEXIUM [Suspect]
     Indication: GASTROOESOPHAGEAL REFLUX DISEASE
     Route: 048
  17. PRILOSEC OTC [Suspect]
     Route: 048
  18. PROZAC [Concomitant]
     Route: 048
  19. ZOFRAN ODT [Concomitant]
     Indication: VOMITING
     Route: 048
  20. CALCIUM PLUS VITAMIN D [Concomitant]
     Dosage: 600-100 MG UNIT CAPS 1 TWO TIMES A DAY
     Route: 048
  21. PRAVACHOL [Concomitant]
     Indication: BLOOD CHOLESTEROL ABNORMAL
     Route: 048
  22. LASIX [Concomitant]
     Route: 048
  23. IBUPROFEN [Concomitant]
     Route: 048
  24. CIPROFLOXACIN HYDROCHLORIDE [Concomitant]
     Indication: INFECTION
     Route: 048

REACTIONS (42)
  - INCISIONAL HERNIA [None]
  - ATROPHIC VULVOVAGINITIS [None]
  - PELVIC PAIN [None]
  - BREAST CANCER [None]
  - COMPRESSION FRACTURE [None]
  - ACUTE SINUSITIS [None]
  - HEPATIC ENZYME INCREASED [None]
  - HYPERTENSION [None]
  - BRONCHITIS [None]
  - HYPERLIPIDAEMIA [None]
  - FATIGUE [None]
  - HYPERCALCAEMIA [None]
  - INTERVERTEBRAL DISC DISORDER [None]
  - OESOPHAGITIS [None]
  - DYSURIA [None]
  - UPPER RESPIRATORY TRACT INFECTION [None]
  - RENAL CANCER [None]
  - ARTHRITIS [None]
  - OSTEOARTHRITIS [None]
  - POLLAKIURIA [None]
  - OESTROGEN DEFICIENCY [None]
  - ABDOMINAL PAIN UPPER [None]
  - HAEMATURIA [None]
  - CHEST DISCOMFORT [None]
  - FIBROMYALGIA [None]
  - OCCIPITAL NEURALGIA [None]
  - GASTROOESOPHAGEAL REFLUX DISEASE [None]
  - HAEMORRHOIDS [None]
  - NASOPHARYNGITIS [None]
  - HYPERPARATHYROIDISM [None]
  - NECK PAIN [None]
  - ABDOMINAL PAIN [None]
  - URINARY TRACT INFECTION [None]
  - BURSITIS [None]
  - FLANK PAIN [None]
  - NEPHROLITHIASIS [None]
  - LUNG DISORDER [None]
  - BACK PAIN [None]
  - CYSTITIS [None]
  - CALCULUS URETHRAL [None]
  - DIVERTICULITIS [None]
  - OSTEOPENIA [None]
